FAERS Safety Report 5881552-1 (Version None)
Quarter: 2008Q3

REPORT INFORMATION
  Report Type: 
  Country: None (occurrence: None)
  Receive Date: 20080912
  Receipt Date: 20080703
  Transmission Date: 20090109
  Serious: No
  Sender: FDA-Public Use
  Company Number: US-ABBOTT-08P-163-0460607-00

PATIENT
  Sex: Female
  Weight: 56.75 kg

DRUGS (3)
  1. HUMIRA [Suspect]
     Indication: CROHN'S DISEASE
     Route: 058
     Dates: start: 20080101, end: 20080601
  2. HEART MEDS [Concomitant]
     Indication: DRUG USE FOR UNKNOWN INDICATION
  3. PREDNISONE TAB [Concomitant]
     Indication: CROHN'S DISEASE

REACTIONS (3)
  - DRUG EFFECT DECREASED [None]
  - MUSCLE ATROPHY [None]
  - WEIGHT DECREASED [None]
